FAERS Safety Report 14109514 (Version 1)
Quarter: 2017Q4

REPORT INFORMATION
  Report Type: Spontaneous
  Country: US (occurrence: US)
  Receive Date: 20171020
  Receipt Date: 20171020
  Transmission Date: 20180321
  Serious: No
  Sender: FDA-Public Use
  Company Number: US-ASTRAZENECA-2017SF05877

PATIENT
  Age: 714 Month
  Sex: Female
  Weight: 81.6 kg

DRUGS (7)
  1. CRESTOR [Suspect]
     Active Substance: ROSUVASTATIN CALCIUM
     Indication: BLOOD CHOLESTEROL INCREASED
     Route: 048
     Dates: start: 20171010
  2. CRESTOR [Suspect]
     Active Substance: ROSUVASTATIN CALCIUM
     Indication: ILL-DEFINED DISORDER
     Route: 048
     Dates: start: 20171010
  3. STOOL SOFTENER OTC [Concomitant]
     Indication: CONSTIPATION
     Route: 048
  4. CO Q10  LIQUID [Concomitant]
     Indication: SUPPLEMENTATION THERAPY
     Dosage: ONE TABLESPOON DAILY
     Route: 048
     Dates: start: 20171010
  5. CRESTOR [Suspect]
     Active Substance: ROSUVASTATIN CALCIUM
     Indication: BLOOD CHOLESTEROL INCREASED
     Route: 048
     Dates: start: 201611, end: 201708
  6. CRESTOR [Suspect]
     Active Substance: ROSUVASTATIN CALCIUM
     Indication: ILL-DEFINED DISORDER
     Route: 048
     Dates: start: 201611, end: 201708
  7. ALLEGRA [Concomitant]
     Active Substance: FEXOFENADINE HYDROCHLORIDE
     Indication: SINUS DISORDER
     Route: 048

REACTIONS (9)
  - Skin discolouration [Recovered/Resolved]
  - Myalgia [Recovering/Resolving]
  - Off label use [Unknown]
  - Weight fluctuation [Unknown]
  - Nervousness [Unknown]
  - Pain [Recovering/Resolving]
  - Mobility decreased [Unknown]
  - Hypoaesthesia [Recovered/Resolved]
  - Product use in unapproved indication [Unknown]

NARRATIVE: CASE EVENT DATE: 201611
